FAERS Safety Report 23740370 (Version 1)
Quarter: 2024Q2

REPORT INFORMATION
  Report Type: Spontaneous
  Country: CN (occurrence: CN)
  Receive Date: 20240415
  Receipt Date: 20240415
  Transmission Date: 20240716
  Serious: Yes (Hospitalization)
  Sender: FDA-Public Use
  Company Number: CN-AMGEN-CHNSP2024072269

PATIENT
  Age: 73 Year
  Sex: Female

DRUGS (4)
  1. KYPROLIS [Suspect]
     Active Substance: CARFILZOMIB
     Indication: Chemotherapy
     Dosage: 30 MILLIGRAM, QWK
     Route: 042
     Dates: start: 20240321, end: 20240322
  2. KYPROLIS [Suspect]
     Active Substance: CARFILZOMIB
     Dosage: 30 MILLIGRAM, QWK
     Route: 042
     Dates: start: 20240328, end: 20240329
  3. SELINEXOR [Suspect]
     Active Substance: SELINEXOR
     Indication: Chemotherapy
     Dosage: 40 MILLIGRAM, QWK
     Route: 048
     Dates: start: 20240321, end: 20240321
  4. SELINEXOR [Suspect]
     Active Substance: SELINEXOR
     Dosage: 40 MILLIGRAM, QWK
     Route: 048
     Dates: start: 20240328, end: 20240328

REACTIONS (1)
  - Salivary hypersecretion [Recovering/Resolving]

NARRATIVE: CASE EVENT DATE: 20240329
